FAERS Safety Report 16671750 (Version 2)
Quarter: 2019Q3

REPORT INFORMATION
  Report Type: Spontaneous
  Country: JP (occurrence: JP)
  Receive Date: 20190806
  Receipt Date: 20190812
  Transmission Date: 20191004
  Serious: Yes (Other)
  Sender: FDA-Public Use
  Company Number: JP-SA-2019SA207358

PATIENT
  Age: 80 Year
  Sex: Male
  Weight: 64 kg

DRUGS (5)
  1. HEPARIN SODIUM. [Suspect]
     Active Substance: HEPARIN SODIUM
     Indication: ILIAC ARTERY OCCLUSION
     Dosage: 10000 U/DAY
     Route: 065
  2. ACETYLSALICYLIC ACID [Suspect]
     Active Substance: ASPIRIN
     Indication: ILIAC ARTERY OCCLUSION
     Dosage: 1 DF, QD
     Route: 048
  3. CLOPIDOGREL BISULFATE. [Suspect]
     Active Substance: CLOPIDOGREL BISULFATE
     Indication: ILIAC ARTERY OCCLUSION
     Dosage: 1 DF, QD
     Route: 048
  4. UROKINASE [Suspect]
     Active Substance: UROKINASE
     Indication: ILIAC ARTERY OCCLUSION
     Dosage: 240000 U/DAY
     Route: 013
  5. CEFTRIAXONE NA [Concomitant]
     Active Substance: CEFTRIAXONE
     Indication: PNEUMONIA
     Dosage: 1 G, BID
     Route: 065

REACTIONS (7)
  - Disseminated intravascular coagulation [Unknown]
  - Vessel puncture site swelling [Recovered/Resolved]
  - Haemorrhage subcutaneous [Recovered/Resolved]
  - Peripheral swelling [Recovered/Resolved]
  - Vessel puncture site haemorrhage [Recovered/Resolved]
  - Vessel puncture site induration [Recovered/Resolved]
  - Shock haemorrhagic [Recovered/Resolved]
